FAERS Safety Report 12870236 (Version 2)
Quarter: 2017Q1

REPORT INFORMATION
  Report Type: Spontaneous
  Country: US (occurrence: US)
  Receive Date: 20161021
  Receipt Date: 20170119
  Transmission Date: 20170428
  Serious: Yes (Hospitalization)
  Sender: FDA-Public Use
  Company Number: US-PFIZER INC-2016489203

PATIENT
  Age: 45 Year
  Sex: Female
  Weight: 118 kg

DRUGS (9)
  1. ZESTRIL [Concomitant]
     Active Substance: LISINOPRIL
     Indication: HYPERTENSION
     Dosage: 5 MG, 1X/DAY
     Dates: start: 20150714
  2. INSULIN [Concomitant]
     Active Substance: INSULIN NOS
     Indication: DIABETES MELLITUS
     Dosage: 190 IU, 1X/DAY IN THE MORNING
     Dates: start: 20040301
  3. LEVEMIR [Concomitant]
     Active Substance: INSULIN DETEMIR
     Indication: DIABETES MELLITUS
     Dosage: 40 IU, 1X/DAY AT BEDTIME
     Dates: start: 20040301
  4. LYRICA [Suspect]
     Active Substance: PREGABALIN
     Indication: DIABETIC NEUROPATHY
     Dosage: 50 MG, 2X/DAY
     Dates: start: 20160821
  5. LIPISTOROL [Concomitant]
     Indication: CARDIAC FAILURE CONGESTIVE
     Dosage: 1 DF, 2X/DAY (EVERY 12 HOURS)
     Dates: start: 20160928
  6. DEXILANT [Concomitant]
     Active Substance: DEXLANSOPRAZOLE
     Indication: GASTROOESOPHAGEAL REFLUX DISEASE
     Dosage: 60 MG, UNK
     Dates: start: 20160313
  7. INSULIN [Concomitant]
     Active Substance: INSULIN NOS
     Dosage: 70 IU, 1X/DAY AT NIGHT
  8. LYRICA [Suspect]
     Active Substance: PREGABALIN
     Indication: NEURALGIA
     Dosage: 50 MG, UNK
     Dates: start: 20160928
  9. POTASSIUM [Concomitant]
     Active Substance: POTASSIUM
     Dosage: 1 DF (20 EQ), 2X/DAY
     Dates: start: 20150714

REACTIONS (4)
  - Chronic obstructive pulmonary disease [Not Recovered/Not Resolved]
  - Lung disorder [Not Recovered/Not Resolved]
  - Fluid retention [Not Recovered/Not Resolved]
  - Asthma [Not Recovered/Not Resolved]

NARRATIVE: CASE EVENT DATE: 20160928
